FAERS Safety Report 5087459-4 (Version None)
Quarter: 2006Q3

REPORT INFORMATION
  Report Type: 
  Country: None (occurrence: None)
  Receive Date: 20060817
  Receipt Date: 20060809
  Transmission Date: 20061208
  Serious: Yes (Other)
  Sender: FDA-Public Use
  Company Number: 2006097309

PATIENT
  Age: 55 Year
  Sex: Female
  Weight: 74.8435 kg

DRUGS (9)
  1. CADUET [Suspect]
     Indication: BLOOD CHOLESTEROL INCREASED
     Dates: start: 20060201
  2. CADUET [Suspect]
     Indication: HYPERTENSION
     Dates: start: 20060201
  3. BENADRYL [Concomitant]
  4. TERAZOSIN HCL [Concomitant]
  5. DRUG, UNSPECIFIED [Concomitant]
  6. ROBAXIN [Concomitant]
  7. KETOPROFEN [Concomitant]
  8. PROMETRIUM [Concomitant]
  9. CETIRIZINE/PSEUDOEPHEDRINE [Concomitant]

REACTIONS (4)
  - BLOOD CHOLESTEROL INCREASED [None]
  - BLOOD PRESSURE INCREASED [None]
  - LIPIDS INCREASED [None]
  - SUFFOCATION FEELING [None]
